FAERS Safety Report 7282201-0 (Version None)
Quarter: 2011Q1

REPORT INFORMATION
  Report Type: 
  Country: None (occurrence: None)
  Receive Date: 20110209
  Receipt Date: 20110203
  Transmission Date: 20110831
  Serious: Yes (Hospitalization, Other)
  Sender: FDA-Public Use
  Company Number: RO-BIOGENIDEC-2011BI004359

PATIENT
  Age: 21 Year
  Sex: Male

DRUGS (3)
  1. IBUPROFEN [Concomitant]
     Indication: PHARYNGITIS
     Route: 048
     Dates: start: 20110129, end: 20110201
  2. TYSABRI [Suspect]
     Indication: MULTIPLE SCLEROSIS
     Route: 042
     Dates: start: 20100317
  3. LEVOFLOXACIN [Concomitant]
     Indication: PHARYNGITIS
     Route: 048
     Dates: start: 20110129, end: 20110202

REACTIONS (1)
  - LUDWIG ANGINA [None]
